FAERS Safety Report 4385706-5 (Version None)
Quarter: 2004Q2

REPORT INFORMATION
  Report Type: 
  Country: None (occurrence: None)
  Receive Date: 20040625
  Receipt Date: 20040625
  Transmission Date: 20050107
  Serious: Yes (Hospitalization)
  Sender: FDA-Public Use
  Company Number: None

PATIENT
  Age: 73 Year
  Sex: Female
  Weight: 63.5036 kg

DRUGS (1)
  1. FERROUS SULFATE TAB [Suspect]
     Dosage: PO
     Route: 048
     Dates: end: 20040401

REACTIONS (6)
  - ANAEMIA [None]
  - ASTHENIA [None]
  - GASTRIC ULCER [None]
  - GASTROINTESTINAL HAEMORRHAGE [None]
  - NAUSEA [None]
  - TROPONIN INCREASED [None]
